FAERS Safety Report 7905008-7 (Version None)
Quarter: 2011Q4

REPORT INFORMATION
  Report Type: 
  Country: None (occurrence: None)
  Receive Date: 20111109
  Receipt Date: 20111103
  Transmission Date: 20120403
  Serious: Yes (Death, Other)
  Sender: FDA-Public Use
  Company Number: PHEH2011US03434

PATIENT
  Sex: Female
  Weight: 67 kg

DRUGS (25)
  1. PREDNISONE [Concomitant]
     Dosage: 10 MG, UNK
  2. MULTI-VITAMINS [Concomitant]
     Dosage: UNK UKN, UNK
  3. CLINDAMYCIN [Concomitant]
     Dosage: UNK UKN, UNK
  4. BUDESONIDE [Concomitant]
     Dosage: UNK UKN, UNK
  5. VITAMIN D [Concomitant]
     Dosage: UNK UKN, UNK
  6. ATIVAN [Concomitant]
     Dosage: UNK UKN, UNK
  7. ACETAMINOPHEN [Concomitant]
     Dosage: UNK UKN, UNK
  8. AZULFIDINE [Concomitant]
     Dosage: UNK UKN, BID
  9. CALCIUM [Concomitant]
     Dosage: UNK UKN, UNK
  10. ASPIRIN [Concomitant]
     Dosage: UNK UKN, UNK
  11. WELLBUTRIN [Concomitant]
     Dosage: UNK UKN, UNK
     Route: 048
  12. OXYCONTIN [Concomitant]
     Dosage: 10 MG, UNK
     Route: 048
  13. PHENALGOL [Concomitant]
     Dosage: UNK UKN, UNK
  14. ACTIGALL [Concomitant]
     Dosage: UNK UKN, UNK
  15. PREDNISONE [Concomitant]
     Dosage: 5 MG, UNK
  16. OS-CAL [Concomitant]
     Dosage: UNK UKN, UNK
  17. OXYCODONE HCL [Concomitant]
     Dosage: UNK UKN, UNK
  18. RECLAST [Suspect]
     Indication: OSTEOPOROSIS
     Dosage: 3.5 ML,
     Route: 042
     Dates: start: 20100724
  19. PROGRAF [Concomitant]
     Dosage: UNK UKN, UNK
  20. STEROIDS [Concomitant]
     Dosage: UNK UKN, UNK
  21. PRILOSEC [Concomitant]
     Dosage: 20 MG, BID
  22. AMBIEN [Concomitant]
     Dosage: 10 MG, UNK
  23. MAGNESIUM CHLORIDE [Concomitant]
     Dosage: UNK UKN, UNK
  24. BUMEX [Concomitant]
     Dosage: UNK UKN, UNK
  25. SULFASALAZINE [Concomitant]
     Dosage: UNK UKN, UNK

REACTIONS (4)
  - DEATH [None]
  - RENAL IMPAIRMENT [None]
  - INCORRECT DOSE ADMINISTERED [None]
  - BONE DISORDER [None]
